FAERS Safety Report 10866432 (Version 1)
Quarter: 2015Q1

REPORT INFORMATION
  Report Type: Spontaneous
  Country: US (occurrence: None)
  Receive Date: 20150219
  Receipt Date: 20150219
  Transmission Date: 20150721
  Serious: Yes (Other)
  Sender: FDA-Public Use
  Company Number: None

PATIENT
  Age: 35 Year
  Sex: Female
  Weight: 63.5 kg

DRUGS (1)
  1. TORADOL [Suspect]
     Active Substance: KETOROLAC TROMETHAMINE
     Indication: DRUG THERAPY
     Dosage: 2 DATES, 2 INJECTIONS; 2 OCCASIONS 2 DRUGS, INTO THE MUSCLE

REACTIONS (4)
  - Malaise [None]
  - Respiratory tract infection [None]
  - Wrong technique in drug usage process [None]
  - Injection site bruising [None]

NARRATIVE: CASE EVENT DATE: 20141114
